FAERS Safety Report 15719577 (Version 1)
Quarter: 2018Q4

REPORT INFORMATION
  Report Type: Spontaneous
  Country: KR (occurrence: KR)
  Receive Date: 20181213
  Receipt Date: 20181213
  Transmission Date: 20190205
  Serious: Yes (Other)
  Sender: FDA-Public Use
  Company Number: KR-BAYER-2018-227070

PATIENT
  Age: 35 Year
  Sex: Female

DRUGS (1)
  1. QLAIRA [Suspect]
     Active Substance: DIENOGEST\ESTRADIOL VALERATE
     Indication: HORMONE LEVEL ABNORMAL
     Route: 048

REACTIONS (4)
  - Blood pressure increased [None]
  - Product use in unapproved indication [None]
  - Intervertebral disc operation [None]
  - Off label use [None]
